FAERS Safety Report 6553886-9 (Version None)
Quarter: 2010Q1

REPORT INFORMATION
  Report Type: 
  Country: None (occurrence: None)
  Receive Date: 20100127
  Receipt Date: 20100120
  Transmission Date: 20100710
  Serious: Yes (Other)
  Sender: FDA-Public Use
  Company Number: DE-ROXANE LABORATORIES, INC.-2010-RO-00070RO

PATIENT
  Age: 31 Year
  Sex: Female

DRUGS (7)
  1. CYCLOPHOSPHAMIDE [Suspect]
     Indication: HODGKIN'S DISEASE STAGE II
  2. PREDNISONE TAB [Suspect]
     Indication: HODGKIN'S DISEASE STAGE II
  3. BLEOMYCIN SULFATE [Suspect]
     Indication: HODGKIN'S DISEASE STAGE II
  4. ETOPOSIDE [Suspect]
     Indication: HODGKIN'S DISEASE STAGE II
  5. ADRIAMYCIN PFS [Suspect]
     Indication: HODGKIN'S DISEASE STAGE II
  6. VINCRISTINE [Suspect]
     Indication: HODGKIN'S DISEASE STAGE II
  7. PROCARBAZINE HYDROCHLORIDE [Suspect]
     Indication: HODGKIN'S DISEASE STAGE II

REACTIONS (1)
  - NAIL DYSTROPHY [None]
